FAERS Safety Report 22181188 (Version 4)
Quarter: 2023Q4

REPORT INFORMATION
  Report Type: Spontaneous
  Country: US (occurrence: US)
  Receive Date: 20230406
  Receipt Date: 20231220
  Transmission Date: 20240110
  Serious: Yes (Hospitalization)
  Sender: FDA-Public Use
  Company Number: US-PFIZER INC-202300143162

PATIENT
  Age: 70 Year
  Sex: Female
  Weight: 61.69 kg

DRUGS (6)
  1. IBRANCE [Suspect]
     Active Substance: PALBOCICLIB
     Indication: Breast cancer metastatic
     Dosage: 125 MG, CYCLIC (TAKE ONE PILL ONCE PER DAY FOR 21 DAYS AND THEN OFF FOR 7 DAYS)
     Route: 048
     Dates: start: 2020
  2. IRON [Concomitant]
     Active Substance: IRON
     Dosage: IRON PILL
     Dates: start: 2022
  3. IRON [Concomitant]
     Active Substance: IRON
     Dosage: UNK
     Dates: start: 2023
  4. PRASTERONE [Concomitant]
     Active Substance: PRASTERONE
     Dosage: UNK
     Dates: start: 2022
  5. PRASTERONE [Concomitant]
     Active Substance: PRASTERONE
     Dosage: UNK
     Dates: start: 2023
  6. INLYTA [Concomitant]
     Active Substance: AXITINIB
     Dosage: UNK
     Route: 048

REACTIONS (8)
  - Headache [Recovered/Resolved]
  - Thyroid disorder [Not Recovered/Not Resolved]
  - Alopecia [Not Recovered/Not Resolved]
  - Weight increased [Not Recovered/Not Resolved]
  - Lacrimation increased [Not Recovered/Not Resolved]
  - Dry eye [Not Recovered/Not Resolved]
  - Facial pain [Not Recovered/Not Resolved]
  - Acne [Not Recovered/Not Resolved]

NARRATIVE: CASE EVENT DATE: 20210101
